FAERS Safety Report 4372437-0 (Version None)
Quarter: 2004Q2

REPORT INFORMATION
  Report Type: 
  Country: None (occurrence: None)
  Receive Date: 20040526
  Receipt Date: 20040514
  Transmission Date: 20050107
  Serious: Yes (Death)
  Sender: FDA-Public Use
  Company Number: JP-JNJFOC-20040402655

PATIENT
  Age: 59 Year
  Sex: Female
  Weight: 54 kg

DRUGS (11)
  1. REMICADE [Suspect]
     Indication: RHEUMATOID ARTHRITIS
     Dosage: 3 MG/KG, 1 IN 1 AS NECESSARY, INTRAVENOUS DRIP
     Route: 041
     Dates: start: 20040323, end: 20040323
  2. REMICADE [Suspect]
     Indication: RHEUMATOID ARTHRITIS
     Dosage: 3 MG/KG, 1 IN 1 AS NECESSARY, INTRAVENOUS DRIP
     Route: 041
     Dates: start: 20040406, end: 20040406
  3. RHEUMATREX [Concomitant]
  4. PREDNISOLONE [Concomitant]
  5. RIMATIL (BUCILLAMINE) UNKNOWN [Concomitant]
  6. VONFENAC (ALL OTHER THERAPEUTIC PRODUCTS) SUPPOSITORY [Concomitant]
  7. VOLNARON (ALL OTHER THERAPEUTIC PRODUCTS) TABLETS [Concomitant]
  8. TAGAMET (CIMETIDINE) UNKNOWN [Concomitant]
  9. CYTOTEC (MISOPROSTOL) UNKNOWN [Concomitant]
  10. BONALON (ALENDRONATE SODIUM) UNKNOWN [Concomitant]
  11. METHYLCOBAL (MECOBALAMIN) UNKNOWN [Concomitant]

REACTIONS (14)
  - ALANINE AMINOTRANSFERASE INCREASED [None]
  - ASPARTATE AMINOTRANSFERASE INCREASED [None]
  - BLOOD LACTATE DEHYDROGENASE INCREASED [None]
  - CARDIO-RESPIRATORY ARREST [None]
  - CIRCULATORY COLLAPSE [None]
  - FALL [None]
  - HAEMOGLOBIN DECREASED [None]
  - LOSS OF CONSCIOUSNESS [None]
  - PLATELET COUNT DECREASED [None]
  - POST PROCEDURAL COMPLICATION [None]
  - PULMONARY EMBOLISM [None]
  - RED BLOOD CELL COUNT DECREASED [None]
  - RESPIRATORY DISTRESS [None]
  - WHITE BLOOD CELL COUNT INCREASED [None]
